FAERS Safety Report 8317716-7 (Version None)
Quarter: 2012Q2

REPORT INFORMATION
  Report Type: 
  Country: None (occurrence: None)
  Receive Date: 20120427
  Receipt Date: 20120420
  Transmission Date: 20120825
  Serious: No
  Sender: FDA-Public Use
  Company Number: US-ROXANE LABORATORIES, INC.-2012-RO-01098RO

PATIENT
  Age: 47 Year
  Sex: Male

DRUGS (3)
  1. MORPHINE [Suspect]
     Indication: CANCER PAIN
  2. VANCOMYCIN [Concomitant]
  3. ZOSYN [Concomitant]

REACTIONS (1)
  - INCORRECT ROUTE OF DRUG ADMINISTRATION [None]
